FAERS Safety Report 17590054 (Version 2)
Quarter: 2020Q2

REPORT INFORMATION
  Report Type: Spontaneous
  Country: US (occurrence: US)
  Receive Date: 20200327
  Receipt Date: 20200402
  Transmission Date: 20200713
  Serious: Yes (Other)
  Sender: FDA-Public Use
  Company Number: US-ASTRAZENECA-2020SE41220

PATIENT
  Age: 25093 Day
  Sex: Female

DRUGS (2)
  1. TAGRISSO [Suspect]
     Active Substance: OSIMERTINIB
     Indication: ADENOCARCINOMA
     Dosage: 40.0MG UNKNOWN
     Route: 048
     Dates: start: 20200311, end: 20200318
  2. TAGRISSO [Suspect]
     Active Substance: OSIMERTINIB
     Indication: ADENOCARCINOMA
     Dosage: 80.0MG UNKNOWN
     Route: 048
     Dates: start: 20191213, end: 20200218

REACTIONS (2)
  - Hepatotoxicity [Unknown]
  - Alanine aminotransferase increased [Unknown]

NARRATIVE: CASE EVENT DATE: 20200218
